FAERS Safety Report 19891013 (Version 1)
Quarter: 2021Q3

REPORT INFORMATION
  Report Type: Spontaneous
  Country: US (occurrence: US)
  Receive Date: 20210927
  Receipt Date: 20210927
  Transmission Date: 20211014
  Serious: Yes (Life-Threatening, Hospitalization, Other)
  Sender: FDA-Public Use
  Company Number: US-AMGEN-USASP2021146199

PATIENT
  Age: 52 Year
  Sex: Female

DRUGS (5)
  1. FILGRASTIM [Suspect]
     Active Substance: FILGRASTIM
     Indication: NEUTROPENIA
     Dosage: 480 MICROGRAM, QD
     Route: 058
  2. LEUCOVORINE [Concomitant]
     Active Substance: LEUCOVORIN
     Dosage: 400 MILLIGRAM/SQ. METER, (GIVEN OVER 2 HOURS WITH OXALIPLATIN)
  3. OXALIPLATIN. [Concomitant]
     Active Substance: OXALIPLATIN
     Dosage: 84 MILLIGRAM/SQ. METER, (GIVEN OVER 2 HOURS)
  4. FLUOROURACIL. [Concomitant]
     Active Substance: FLUOROURACIL
     Dosage: 400 MILLIGRAM/SQ. METER, (GIVEN OVER 15 MINUTES)
  5. FLUOROURACIL. [Concomitant]
     Active Substance: FLUOROURACIL
     Dosage: 400 MILLIGRAM/SQ. METER, (GIVEN OVER 46 HOURS)

REACTIONS (3)
  - Febrile neutropenia [Recovered/Resolved]
  - Neutropenia [Recovered/Resolved]
  - Therapy non-responder [Unknown]
